FAERS Safety Report 4500396-6 (Version None)
Quarter: 2004Q4

REPORT INFORMATION
  Report Type: 
  Country: None (occurrence: None)
  Receive Date: 20041112
  Receipt Date: 20041105
  Transmission Date: 20050328
  Serious: Yes (Disabling)
  Sender: FDA-Public Use
  Company Number: US-MERCK-0411USA01024

PATIENT
  Age: 64 Year
  Sex: Female

DRUGS (1)
  1. VIOXX [Suspect]
     Indication: BACK PAIN
     Route: 048
     Dates: start: 20040601, end: 20040601

REACTIONS (4)
  - DIFFICULTY IN WALKING [None]
  - LOCALISED EXFOLIATION [None]
  - ONYCHOMYCOSIS [None]
  - SKIN FISSURES [None]
